FAERS Safety Report 20129535 (Version 1)
Quarter: 2021Q4

REPORT INFORMATION
  Report Type: Spontaneous
  Country: US (occurrence: US)
  Receive Date: 20211130
  Receipt Date: 20211130
  Transmission Date: 20220303
  Serious: Yes (Other)
  Sender: FDA-Public Use
  Company Number: US-AMGEN-USASP2021186842

PATIENT
  Sex: Female

DRUGS (3)
  1. ENBREL [Suspect]
     Active Substance: ETANERCEPT
     Indication: Endometriosis
     Dosage: 50 MILLIGRAM, QWK
     Route: 058
     Dates: start: 20190318
  2. CITALOPRAM HYDROBROMIDE [Concomitant]
     Active Substance: CITALOPRAM HYDROBROMIDE
     Dosage: UNK
  3. MINERA [Concomitant]
     Dosage: 52 MILLIGRAM

REACTIONS (2)
  - Pneumonia [Recovered/Resolved]
  - Off label use [Unknown]
